FAERS Safety Report 14391219 (Version 2)
Quarter: 2018Q1

REPORT INFORMATION
  Report Type: Spontaneous
  Country: US (occurrence: US)
  Receive Date: 20180116
  Receipt Date: 20180305
  Transmission Date: 20180509
  Serious: No
  Sender: FDA-Public Use
  Company Number: US-PFIZER INC-2018018730

PATIENT
  Age: 83 Year
  Sex: Male

DRUGS (5)
  1. METOPROLOL TARTRATE. [Concomitant]
     Active Substance: METOPROLOL TARTRATE
     Indication: BLOOD PRESSURE ABNORMAL
     Dosage: 25 MG, 2X/DAY
     Dates: start: 1990
  2. ASPIRIN. [Suspect]
     Active Substance: ASPIRIN
     Indication: ANTICOAGULANT THERAPY
     Dosage: UNK
     Dates: start: 2016
  3. SUTENT [Suspect]
     Active Substance: SUNITINIB MALATE
     Indication: RENAL CANCER
     Dosage: UNK, CYCLIC (37.5 WITH UNKNOWN UNIT) (ON 14 DAYS, OFF 7 DAYS)
     Dates: start: 201511
  4. PLAVIX [Suspect]
     Active Substance: CLOPIDOGREL BISULFATE
     Indication: ANTICOAGULANT THERAPY
     Dosage: 75 MG, 1X/DAY (1 TABLET)
     Dates: start: 2016
  5. SIMVASTATIN. [Suspect]
     Active Substance: SIMVASTATIN
     Indication: BLOOD CHOLESTEROL DECREASED
     Dosage: 10 MG, DAILY
     Dates: start: 1990

REACTIONS (5)
  - Stomatitis [Not Recovered/Not Resolved]
  - Influenza [Recovered/Resolved]
  - Malaise [Recovered/Resolved]
  - Diarrhoea [Not Recovered/Not Resolved]
  - Dysgeusia [Not Recovered/Not Resolved]

NARRATIVE: CASE EVENT DATE: 20171228
